FAERS Safety Report 6016694-3 (Version None)
Quarter: 2008Q4

REPORT INFORMATION
  Report Type: 
  Country: None (occurrence: None)
  Receive Date: 20081218
  Receipt Date: 20081212
  Transmission Date: 20090506
  Serious: Yes (Disabling)
  Sender: FDA-Public Use
  Company Number: 100#03#2008-06243

PATIENT
  Age: 60 Year
  Sex: Female

DRUGS (3)
  1. SIMVASTATIN [Suspect]
     Indication: HYPERLIPIDAEMIA
     Dosage: 20 MG
     Route: 048
     Dates: end: 20071001
  2. PRAVASTATIN [Suspect]
     Indication: HYPERLIPIDAEMIA
     Dosage: 10 MG
     Route: 048
     Dates: start: 20081103
  3. GLUCOSAMINE (GLUCOSAMINE) [Concomitant]

REACTIONS (3)
  - ANXIETY [None]
  - ILL-DEFINED DISORDER [None]
  - PALPITATIONS [None]
